FAERS Safety Report 5951239-5 (Version None)
Quarter: 2008Q4

REPORT INFORMATION
  Report Type: 
  Country: None (occurrence: None)
  Receive Date: 20081113
  Receipt Date: 20081110
  Transmission Date: 20090506
  Serious: Yes (Death, Other)
  Sender: FDA-Public Use
  Company Number: NO-BRISTOL-MYERS SQUIBB COMPANY-14403224

PATIENT
  Age: 51 Year
  Sex: Male

DRUGS (4)
  1. ORENCIA [Suspect]
     Indication: RHEUMATOID ARTHRITIS
     Dates: end: 20081006
  2. METHOTREXATE [Concomitant]
  3. VOLTAREN [Concomitant]
  4. FOLIC ACID [Concomitant]

REACTIONS (2)
  - FALL [None]
  - SUDDEN DEATH [None]
